FAERS Safety Report 10823824 (Version 1)
Quarter: 2015Q1

REPORT INFORMATION
  Report Type: Report from Study
  Country: US (occurrence: US)
  Receive Date: 20150219
  Receipt Date: 20150219
  Transmission Date: 20150721
  Serious: No
  Sender: FDA-Public Use
  Company Number: US-ABBVIE-14K-163-1312146-00

PATIENT
  Sex: Female
  Weight: 72.64 kg

DRUGS (10)
  1. METHOTREXATE [Concomitant]
     Active Substance: METHOTREXATE
     Route: 048
  2. OMEPRAZOLE. [Concomitant]
     Active Substance: OMEPRAZOLE
     Indication: GASTROOESOPHAGEAL REFLUX DISEASE
  3. HUMIRA [Suspect]
     Active Substance: ADALIMUMAB
     Indication: PSORIASIS
     Route: 065
     Dates: start: 2014
  4. GLIMEPIRIDE. [Concomitant]
     Active Substance: GLIMEPIRIDE
     Indication: DIABETES MELLITUS
  5. LISINOPRIL. [Concomitant]
     Active Substance: LISINOPRIL
     Indication: HYPERTENSION
  6. LOVASTATIN. [Concomitant]
     Active Substance: LOVASTATIN
     Indication: BLOOD CHOLESTEROL INCREASED
  7. BIOTIN [Concomitant]
     Active Substance: BIOTIN
     Indication: BLOOD CHOLESTEROL INCREASED
  8. METHOTREXATE [Concomitant]
     Active Substance: METHOTREXATE
     Indication: PSORIASIS
     Route: 048
  9. FOLBEE [Concomitant]
     Indication: ALOPECIA
  10. NIACIN. [Concomitant]
     Active Substance: NIACIN
     Indication: PRODUCT USED FOR UNKNOWN INDICATION

REACTIONS (5)
  - Pharyngitis [Recovered/Resolved]
  - Tonsillar hypertrophy [Recovered/Resolved]
  - Psoriasis [Unknown]
  - Pharyngitis [Recovered/Resolved]
  - Tonsillar hypertrophy [Recovered/Resolved]

NARRATIVE: CASE EVENT DATE: 2014
